FAERS Safety Report 5173311-2 (Version None)
Quarter: 2006Q4

REPORT INFORMATION
  Report Type: 
  Country: None (occurrence: None)
  Receive Date: 20061214
  Receipt Date: 20061206
  Transmission Date: 20070319
  Serious: Yes (Hospitalization)
  Sender: FDA-Public Use
  Company Number: CA-JNJFOC-20061201873

PATIENT
  Sex: Male
  Weight: 90 kg

DRUGS (13)
  1. REMICADE [Suspect]
     Indication: RHEUMATOID ARTHRITIS
     Route: 042
  2. MOTILIUM [Concomitant]
     Route: 048
  3. NASONEX [Concomitant]
     Route: 055
  4. ATACAND [Concomitant]
     Route: 048
  5. PREDNISONE TAB [Concomitant]
     Route: 048
  6. RADO SCITRALINE [Concomitant]
  7. APO-METHOTREXATE [Concomitant]
  8. CALCITE 500+D [Concomitant]
  9. FOSAMAX [Concomitant]
  10. CENTRUM [Concomitant]
  11. BROMAZEPAM [Concomitant]
  12. COLACE [Concomitant]
  13. SENOKOT [Concomitant]

REACTIONS (2)
  - FALL [None]
  - SPINAL FRACTURE [None]
